FAERS Safety Report 6837265-2 (Version None)
Quarter: 2010Q3

REPORT INFORMATION
  Report Type: 
  Country: None (occurrence: None)
  Receive Date: 20100713
  Receipt Date: 20071030
  Transmission Date: 20110219
  Serious: No
  Sender: FDA-Public Use
  Company Number: US-PFIZER INC-2007036582

PATIENT
  Sex: Female
  Weight: 137.44 kg

DRUGS (13)
  1. CHANTIX [Suspect]
     Indication: SMOKING CESSATION THERAPY
     Route: 048
     Dates: start: 20070402
  2. RANITIDINE [Concomitant]
  3. GLIPIZIDE [Concomitant]
  4. METFORMIN HYDROCHLORIDE [Concomitant]
  5. ACETYLSALICYLIC ACID [Concomitant]
  6. VITAMIN C [Concomitant]
  7. MULTI-VITAMINS [Concomitant]
  8. TIOTROPIUM BROMIDE [Concomitant]
     Dosage: 2 PUFFS TWICE DAILY
  9. BENZTROPINE MESYLATE [Concomitant]
  10. DILTIAZEM [Concomitant]
  11. LISINOPRIL [Concomitant]
     Route: 048
  12. SEREVENT [Concomitant]
  13. FUROSEMIDE [Concomitant]
     Route: 048

REACTIONS (3)
  - ABNORMAL DREAMS [None]
  - DRUG EFFECT DECREASED [None]
  - HEADACHE [None]
